FAERS Safety Report 14570584 (Version 5)
Quarter: 2020Q2

REPORT INFORMATION
  Report Type: Report from Study
  Country: ES (occurrence: ES)
  Receive Date: 20180226
  Receipt Date: 20200604
  Transmission Date: 20200713
  Serious: Yes (Hospitalization)
  Sender: FDA-Public Use
  Company Number: ES-ROCHE-2073669

PATIENT
  Age: 84 Year
  Sex: Female
  Weight: 65 kg

DRUGS (3)
  1. CARBOPLATIN. [Suspect]
     Active Substance: CARBOPLATIN
     Indication: BREAST CANCER
     Route: 042
     Dates: start: 20170616, end: 20180208
  2. NAB-PACLITAXEL [Suspect]
     Active Substance: PACLITAXEL
     Indication: BREAST CANCER
     Route: 042
     Dates: start: 20170616, end: 20180208
  3. ATEZOLIZUMAB. [Suspect]
     Active Substance: ATEZOLIZUMAB
     Indication: BREAST CANCER
     Route: 042
     Dates: start: 20170616, end: 20180208

REACTIONS (2)
  - Pneumocystis jirovecii infection [Recovered/Resolved]
  - Thrombotic thrombocytopenic purpura [Recovered/Resolved]

NARRATIVE: CASE EVENT DATE: 20180210
